FAERS Safety Report 8485983-5 (Version None)
Quarter: 2012Q2

REPORT INFORMATION
  Report Type: 
  Country: None (occurrence: None)
  Receive Date: 20120626
  Receipt Date: 20120615
  Transmission Date: 20120825
  Serious: Yes (Hospitalization)
  Sender: FDA-Public Use
  Company Number: GER/UKI/12/0024704

PATIENT
  Age: 78 Year
  Sex: Male
  Weight: 70 kg

DRUGS (3)
  1. PRAVASTAITN (PRAVASTATIN) [Concomitant]
  2. METFFORMIN HYDROCHLORIDE [Concomitant]
  3. RIVASTIGMINE TARTRATE [Suspect]
     Indication: PRODUCT USED FOR UNKNOWN INDICATION
     Dosage: ORAL
     Route: 048
     Dates: start: 20120502, end: 20120604

REACTIONS (3)
  - FALL [None]
  - EXTRASYSTOLES [None]
  - BRADYCARDIA [None]
